FAERS Safety Report 12705430 (Version 1)
Quarter: 2016Q3

REPORT INFORMATION
  Report Type: Spontaneous
  Country: US (occurrence: None)
  Receive Date: 20160831
  Receipt Date: 20160831
  Transmission Date: 20161109
  Serious: Yes (Disabling)
  Sender: FDA-Public Use
  Company Number: None

PATIENT
  Age: 25 Year
  Sex: Female
  Weight: 81.65 kg

DRUGS (1)
  1. CLINDAMYCIN HCL MG CAP AURO, 150 MG [Suspect]
     Active Substance: CLINDAMYCIN HYDROCHLORIDE
     Indication: ORAL INFECTION
     Dosage: 2 CAPSULE(S) THREE TIMES A DAY TAKEN BY MOUTH
     Route: 048
     Dates: start: 20160805, end: 20160815

REACTIONS (4)
  - Rectal haemorrhage [None]
  - Impaired work ability [None]
  - Diarrhoea [None]
  - Abdominal discomfort [None]

NARRATIVE: CASE EVENT DATE: 20160819
